FAERS Safety Report 17540378 (Version 2)
Quarter: 2020Q4

REPORT INFORMATION
  Report Type: Spontaneous
  Country: PL (occurrence: PL)
  Receive Date: 20200313
  Receipt Date: 20201028
  Transmission Date: 20210113
  Serious: Yes (Other)
  Sender: FDA-Public Use
  Company Number: PL-PFIZER INC-2020107587

PATIENT

DRUGS (2)
  1. CYTARABINE. [Suspect]
     Active Substance: CYTARABINE
     Dosage: UNK
     Route: 065
  2. MIDOSTAURIN [Suspect]
     Active Substance: MIDOSTAURIN
     Dosage: UNK
     Route: 065

REACTIONS (7)
  - Pancytopenia [Unknown]
  - Neoplasm progression [Unknown]
  - Sepsis [Unknown]
  - Diarrhoea [Unknown]
  - Impaired healing [Unknown]
  - Off label use [Unknown]
  - Fournier^s gangrene [Unknown]
